FAERS Safety Report 15335581 (Version 1)
Quarter: 2018Q4

REPORT INFORMATION
  Report Type: Spontaneous
  Country: US (occurrence: US)
  Receive Date: 20180830
  Receipt Date: 20180830
  Transmission Date: 20190204
  Serious: No
  Sender: FDA-Public Use
  Company Number: US-TEVA-2018-US-948562

PATIENT
  Sex: Female

DRUGS (1)
  1. HYDROACETATAB-A (ACETAMINOPHEN\HYDROCODONE) [Suspect]
     Active Substance: ACETAMINOPHEN\HYDROCODONE
     Indication: PRODUCT USED FOR UNKNOWN INDICATION
     Route: 065

REACTIONS (3)
  - Pain [Unknown]
  - Somnolence [Unknown]
  - Drug ineffective [Unknown]
